FAERS Safety Report 8958866 (Version 3)
Quarter: 2013Q3

REPORT INFORMATION
  Report Type: Spontaneous
  Country: US (occurrence: US)
  Receive Date: 20121212
  Receipt Date: 20130911
  Transmission Date: 20140515
  Serious: Yes (Death)
  Sender: FDA-Public Use
  Company Number: US-BAYER-2012-129360

PATIENT
  Age: 32 Year
  Sex: Female
  Weight: 90.7 kg

DRUGS (11)
  1. YAZ [Suspect]
  2. YASMIN [Suspect]
  3. OXYCODONE/APAP [Concomitant]
     Dosage: 5-325 MG
  4. AZITHROMYCIN [Concomitant]
     Dosage: 250 MG, UNK
  5. KLONOPIN [Concomitant]
  6. FLEXERIL [Concomitant]
  7. IBUPROFEN [Concomitant]
  8. CYMBALTA [Concomitant]
  9. PROMETHAZINE [Concomitant]
  10. ALEURON [Concomitant]
  11. CETININE [Concomitant]

REACTIONS (1)
  - Toxicity to various agents [Fatal]
